FAERS Safety Report 26158123 (Version 1)
Quarter: 2025Q4

REPORT INFORMATION
  Report Type: Spontaneous
  Country: CO (occurrence: CO)
  Receive Date: 20251215
  Receipt Date: 20251215
  Transmission Date: 20260118
  Serious: Yes (Hospitalization)
  Sender: BIOMARIN
  Company Number: CO-BIOMARINAP-CO-2025-170604

PATIENT
  Sex: Female
  Weight: 23 kg

DRUGS (1)
  1. BRINEURA [Suspect]
     Active Substance: CERLIPONASE ALFA
     Indication: Neuronal ceroid lipofuscinosis
     Dosage: 300 MILLIGRAM, QOW
     Dates: start: 20171211

REACTIONS (5)
  - Pneumonia [Unknown]
  - Tooth infection [Unknown]
  - Eating disorder [Unknown]
  - Cough [Unknown]
  - Pyrexia [Unknown]
